FAERS Safety Report 6662579-9 (Version None)
Quarter: 2010Q1

REPORT INFORMATION
  Report Type: 
  Country: None (occurrence: None)
  Receive Date: 20100329
  Receipt Date: 20100316
  Transmission Date: 20100710
  Serious: No
  Sender: FDA-Public Use
  Company Number: RB-02525-2010

PATIENT
  Age: 53 Year
  Sex: Male

DRUGS (8)
  1. SUBUTEX [Suspect]
     Indication: DRUG DEPENDENCE
     Dosage: 3 MG QD 6 MG QD 2 MG TID
     Dates: start: 20081101
  2. SUBUTEX [Suspect]
     Indication: DRUG DEPENDENCE
     Dosage: 3 MG QD 6 MG QD 2 MG TID
     Dates: start: 20100101
  3. TEMGESIC (TEMGESIC FORTE) [Suspect]
     Indication: PAIN
     Dosage: 0.4 MG QID SUBLINGUAL
     Route: 060
     Dates: start: 20100101
  4. FLUPIRTINE [Concomitant]
  5. GABAPENTIN [Concomitant]
  6. DIAZEPAM [Concomitant]
  7. MIRTAZAPINE [Concomitant]
  8. SUBOXONE [Concomitant]

REACTIONS (2)
  - FATIGUE [None]
  - THERAPEUTIC RESPONSE UNEXPECTED [None]
